FAERS Safety Report 4990780-9 (Version None)
Quarter: 2006Q1

REPORT INFORMATION
  Report Type: 
  Country: None (occurrence: None)
  Receive Date: 20060315
  Receipt Date: 20050819
  Transmission Date: 20060701
  Serious: Yes (Other)
  Sender: FDA-Public Use
  Company Number: USA0508105373

PATIENT
  Sex: Female

DRUGS (2)
  1. GEMZAR [Suspect]
     Indication: PANCREATIC CARCINOMA
     Dosage: 800 MG/M2, INTRAVENOUS
     Route: 042
  2. CISPLATIN [Concomitant]

REACTIONS (2)
  - BLOOD ALKALINE PHOSPHATASE INCREASED [None]
  - METASTASES TO BONE [None]
